FAERS Safety Report 6556193-3 (Version None)
Quarter: 2010Q1

REPORT INFORMATION
  Report Type: 
  Country: None (occurrence: None)
  Receive Date: 20100128
  Receipt Date: 20090821
  Transmission Date: 20100710
  Serious: Yes (Hospitalization, Other)
  Sender: FDA-Public Use
  Company Number: US-TEVA-201510USA

PATIENT
  Sex: Female

DRUGS (2)
  1. COPAXONE [Suspect]
     Indication: MULTIPLE SCLEROSIS
     Route: 058
     Dates: end: 20090301
  2. INTERFERON BETA [Suspect]
     Dates: start: 20090518

REACTIONS (2)
  - ADNEXA UTERI MASS [None]
  - OVARIAN CANCER [None]
